FAERS Safety Report 24892090 (Version 5)
Quarter: 2025Q1

REPORT INFORMATION
  Report Type: Spontaneous
  Country: CA (occurrence: CA)
  Receive Date: 20250128
  Receipt Date: 20250205
  Transmission Date: 20250409
  Serious: Yes (Death, Life-Threatening, Other)
  Sender: TEVA
  Company Number: CA-TEVA-VS-3290482

PATIENT
  Age: 92 Year
  Sex: Female

DRUGS (14)
  1. METHOTREXATE SODIUM [Suspect]
     Active Substance: METHOTREXATE SODIUM
     Indication: Chondrocalcinosis
     Route: 065
  2. METHOTREXATE SODIUM [Suspect]
     Active Substance: METHOTREXATE SODIUM
     Indication: Chondrocalcinosis
     Route: 065
  3. METHOTREXATE SODIUM [Suspect]
     Active Substance: METHOTREXATE SODIUM
     Indication: Chondrocalcinosis
     Route: 065
  4. METHOTREXATE SODIUM [Suspect]
     Active Substance: METHOTREXATE SODIUM
     Indication: Chondrocalcinosis
     Route: 065
  5. METHOTREXATE SODIUM [Suspect]
     Active Substance: METHOTREXATE SODIUM
     Indication: Chondrocalcinosis
     Route: 065
  6. COLCHICINE [Concomitant]
     Active Substance: COLCHICINE
     Indication: Chondrocalcinosis
     Route: 065
  7. TRIAMCINOLONE [Concomitant]
     Active Substance: TRIAMCINOLONE
     Indication: Xanthogranuloma
     Route: 026
  8. PREDNISONE [Concomitant]
     Active Substance: PREDNISONE
     Indication: Chondrocalcinosis
     Route: 065
  9. PREDNISONE [Concomitant]
     Active Substance: PREDNISONE
     Indication: Chondrocalcinosis
     Route: 065
  10. PREDNISONE [Concomitant]
     Active Substance: PREDNISONE
     Indication: Chondrocalcinosis
     Route: 065
  11. PREDNISONE [Concomitant]
     Active Substance: PREDNISONE
     Indication: Chondrocalcinosis
     Route: 065
  12. IMMUNOGLOBULIN [Concomitant]
     Indication: Xanthogranuloma
     Route: 065
  13. COLCHICINE [Suspect]
     Active Substance: COLCHICINE
     Indication: Chondrocalcinosis
     Route: 065
  14. METHOTREXATE [Suspect]
     Active Substance: METHOTREXATE
     Indication: Polymyalgia rheumatica
     Route: 065

REACTIONS (3)
  - Toxicity to various agents [Fatal]
  - Off label use [Fatal]
  - Drug ineffective for unapproved indication [Unknown]
